FAERS Safety Report 14530102 (Version 1)
Quarter: 2018Q1

REPORT INFORMATION
  Report Type: Other
  Country: FR (occurrence: FR)
  Receive Date: 20180214
  Receipt Date: 20180214
  Transmission Date: 20180509
  Serious: Yes (Death)
  Sender: FDA-Public Use
  Company Number: FR-GLENMARK PHARMACEUTICALS-2015GMK031956

PATIENT

DRUGS (24)
  1. VOGALENE [Suspect]
     Active Substance: METOPIMAZINE
     Indication: FOETAL EXPOSURE DURING PREGNANCY
     Dosage: (MATERNAL DOSE: UNKNOWN) ()
     Route: 064
     Dates: start: 201406
  2. FUNGIZONE [Concomitant]
     Active Substance: AMPHOTERICIN B
     Indication: FUNGAL INFECTION
     Dosage: 0.5 ML, FOR 15 DAYS
     Route: 065
     Dates: start: 20150126
  3. OMEPRAZOLE. [Suspect]
     Active Substance: OMEPRAZOLE
     Indication: FOETAL EXPOSURE DURING PREGNANCY
     Dosage: (MATERNAL DOSE: UNKNOWN) ()
     Route: 064
  4. VOGALENE [Suspect]
     Active Substance: METOPIMAZINE
     Dosage: (MATERNAL DOSE: UNKNOWN) ()
     Route: 064
     Dates: start: 20140920, end: 201709
  5. SPASFON LYOC [Suspect]
     Active Substance: PHLOROGLUCINOL
     Indication: FOETAL EXPOSURE DURING PREGNANCY
     Dosage: (MATERNAL DOSE: UNKNOWN) ()
     Route: 064
     Dates: start: 201406, end: 201407
  6. KETOPROFENE MYLAN [Suspect]
     Active Substance: KETOPROFEN
     Indication: FOETAL EXPOSURE DURING PREGNANCY
     Dosage: (MATERNAL DOSE: UNKNOWN) ()
     Route: 064
  7. ACETYLCYSTEINE BIOGARAN [Suspect]
     Active Substance: ACETYLCYSTEINE
     Indication: FOETAL EXPOSURE DURING PREGNANCY
     Dosage: MATERNAL DOSE: UNKNOWN) ()
     Route: 064
  8. UVESTEROL D [Suspect]
     Active Substance: ERGOCALCIFEROL
     Dosage: MATERNAL DOSE: 5000 U/I ()
     Route: 064
  9. UVESTEROL D [Suspect]
     Active Substance: ERGOCALCIFEROL
     Indication: FOETAL EXPOSURE DURING PREGNANCY
     Dosage: MATERNAL DOSE: 1500 U/I ()
     Route: 064
  10. BI-PROFENID [Suspect]
     Active Substance: KETOPROFEN
     Indication: FOETAL EXPOSURE DURING PREGNANCY
     Dosage: (MATERNAL DOSE: UNKNOWN) ()
     Route: 064
  11. PARACETAMOL ARROW [Concomitant]
     Active Substance: ACETAMINOPHEN
     Indication: PRODUCT USED FOR UNKNOWN INDICATION
     Dosage: UNK
     Route: 065
  12. MACROGOL BIOGARAN [Suspect]
     Active Substance: POLYETHYLENE GLYCOLS
     Indication: FOETAL EXPOSURE DURING PREGNANCY
     Dosage: MATERNAL DOSE: UNKNOWN) ()
     Route: 064
     Dates: start: 201406
  13. AMOXYCILLIN ALMUS [Suspect]
     Active Substance: AMOXICILLIN
     Indication: FOETAL EXPOSURE DURING PREGNANCY
     Dosage: MATERNAL DOSE: UNKNOWN) ()
     Route: 064
     Dates: start: 20140827
  14. IMODIUM [Suspect]
     Active Substance: LOPERAMIDE HYDROCHLORIDE
     Indication: FOETAL EXPOSURE DURING PREGNANCY
     Dosage: MATERNAL DOSE: UNKNOWN) FOR 5 DAYS ()
     Route: 064
  15. CARBOCISTEINE BIOGARAN [Suspect]
     Active Substance: CARBOCYSTEINE
     Indication: FOETAL EXPOSURE DURING PREGNANCY
     Dosage: MATERNAL DOSE: UNKNOWN) 5 POUR CENT ()
     Route: 064
  16. AMOXYCILLIN ALMUS [Suspect]
     Active Substance: AMOXICILLIN
     Dosage: MATERNAL DOSE: UNKNOWN) ()
     Route: 064
     Dates: start: 201412
  17. BROMAZEPAM ARROW [Suspect]
     Active Substance: BROMAZEPAM
     Indication: FOETAL EXPOSURE DURING PREGNANCY
     Dosage: ONE AND A HALF DOSAGE PER DAY (1)
     Route: 064
  18. ANAFRANIL [Suspect]
     Active Substance: CLOMIPRAMINE HYDROCHLORIDE
     Indication: FOETAL EXPOSURE DURING PREGNANCY
     Dosage: 2 DF, QD
     Route: 064
  19. KETOPROFENE ARROW [Suspect]
     Active Substance: KETOPROFEN
     Indication: FOETAL EXPOSURE DURING PREGNANCY
     Dosage: (MATERNAL DOSE: UNKNOWN) ()
     Route: 064
  20. SERETIDE [Suspect]
     Active Substance: FLUTICASONE PROPIONATE\SALMETEROL XINAFOATE
     Indication: FOETAL EXPOSURE DURING PREGNANCY
     Dosage: MATERNAL DOSE: UNKNOWN) ()
     Route: 064
  21. MACROGOL BIOGARAN [Suspect]
     Active Substance: POLYETHYLENE GLYCOLS
     Dosage: MATERNAL DOSE: UNKNOWN) ()
     Route: 064
     Dates: start: 20140716, end: 201409
  22. NECYRANE [Suspect]
     Active Substance: RITIOMETAN
     Indication: FOETAL EXPOSURE DURING PREGNANCY
     Dosage: MATERNAL DOSE: UNKNOWN) ()
     Route: 064
  23. KLIPAL CODEINE [Suspect]
     Active Substance: ACETAMINOPHEN\CODEINE PHOSPHATE
     Indication: FOETAL EXPOSURE DURING PREGNANCY
     Dosage: (MATERNAL DOSE: UNKNOWN) ()
     Route: 064
     Dates: end: 20150104
  24. PIVALONE                           /00803802/ [Suspect]
     Active Substance: TIXOCORTOL PIVALATE
     Indication: FOETAL EXPOSURE DURING PREGNANCY
     Dosage: MATERNAL DOSE: UNKNOWN) ()
     Route: 064

REACTIONS (1)
  - Death [Fatal]

NARRATIVE: CASE EVENT DATE: 20150303
